FAERS Safety Report 13186734 (Version 1)
Quarter: 2017Q1

REPORT INFORMATION
  Report Type: Report from Study
  Country: None (occurrence: US)
  Receive Date: 20170205
  Receipt Date: 20170205
  Transmission Date: 20170428
  Serious: Yes (Other)
  Sender: FDA-Public Use
  Company Number: US-ABBVIE-17K-163-1858366-00

PATIENT
  Sex: Male

DRUGS (3)
  1. HUMIRA [Suspect]
     Active Substance: ADALIMUMAB
     Route: 058
     Dates: start: 201606, end: 201608
  2. HUMIRA [Suspect]
     Active Substance: ADALIMUMAB
     Indication: PSORIASIS
     Route: 058
     Dates: start: 2013, end: 201603
  3. HUMIRA [Suspect]
     Active Substance: ADALIMUMAB
     Route: 058
     Dates: start: 2016, end: 201701

REACTIONS (7)
  - Sinus polyp [Unknown]
  - Injection site vesicles [Recovered/Resolved]
  - Psoriasis [Unknown]
  - Multiple allergies [Unknown]
  - Nasopharyngitis [Unknown]
  - Wheezing [Unknown]
  - Device issue [Unknown]

NARRATIVE: CASE EVENT DATE: 2016
